FAERS Safety Report 8782959 (Version 1)
Quarter: 2012Q4

REPORT INFORMATION
  Report Type: Report from Study
  Country: US (occurrence: US)
  Receive Date: 20120913
  Receipt Date: 20120913
  Transmission Date: 20130627
  Serious: No
  Sender: FDA-Public Use
  Company Number: US-VERTEX PHARMACEUTICAL INC.-AE-2012-009828

PATIENT
  Sex: Male

DRUGS (6)
  1. INCIVEK [Suspect]
     Indication: HEPATITIS C
     Route: 048
     Dates: start: 20110902, end: 201112
  2. PEGINTRON REDIPEN [Concomitant]
     Indication: HEPATITIS C
     Route: 058
     Dates: start: 20110902
  3. RIBAPAK [Concomitant]
     Indication: HEPATITIS C
     Dates: start: 20110902
  4. COD LIVER OIL [Concomitant]
  5. MULTIVITAMIN [Concomitant]
  6. GARLIC [Concomitant]

REACTIONS (2)
  - Weight decreased [Unknown]
  - Mood swings [Unknown]
